FAERS Safety Report 5256741-X (Version None)
Quarter: 2007Q1

REPORT INFORMATION
  Report Type: 
  Country: None (occurrence: None)
  Receive Date: 20070301
  Receipt Date: 20070216
  Transmission Date: 20070707
  Serious: Yes (Hospitalization)
  Sender: FDA-Public Use
  Company Number: CERZ-11529

PATIENT
  Age: 70 Year
  Sex: Female
  Weight: 42.7 kg

DRUGS (2)
  1. CEREZYME [Suspect]
     Indication: GAUCHER'S DISEASE
     Dosage: 60 U/KG Q2WKS IV
     Route: 042
     Dates: start: 20010605
  2. CEREZYME [Suspect]

REACTIONS (2)
  - FALL [None]
  - HIP FRACTURE [None]
